FAERS Safety Report 25999472 (Version 1)
Quarter: 2025Q4

REPORT INFORMATION
  Report Type: Spontaneous
  Country: US (occurrence: US)
  Receive Date: 20251105
  Receipt Date: 20251105
  Transmission Date: 20260118
  Serious: No
  Sender: BRISTOL-MYERS SQUIBB COMPANY
  Company Number: US-BRISTOL-MYERS SQUIBB COMPANY-2025-149812

PATIENT
  Age: 74 Year
  Sex: Female
  Weight: 61.23 kg

DRUGS (4)
  1. ELIQUIS [Suspect]
     Active Substance: APIXABAN
     Indication: Deep vein thrombosis
     Route: 048
     Dates: start: 202504
  2. ELIQUIS [Suspect]
     Active Substance: APIXABAN
     Route: 048
  3. FOLIC ACID [Concomitant]
     Active Substance: FOLIC ACID
     Indication: Product used for unknown indication
  4. PLAXID [Concomitant]
     Indication: Product used for unknown indication

REACTIONS (4)
  - Product prescribing issue [Unknown]
  - Alopecia [Unknown]
  - Urinary tract infection [Unknown]
  - Therapy interrupted [Unknown]

NARRATIVE: CASE EVENT DATE: 20250601
